FAERS Safety Report 4433325-4 (Version None)
Quarter: 2004Q3

REPORT INFORMATION
  Report Type: 
  Country: None (occurrence: None)
  Receive Date: 20040824
  Receipt Date: 20040813
  Transmission Date: 20050211
  Serious: Yes (Congenital Anomaly)
  Sender: FDA-Public Use
  Company Number: 2004S1000062

PATIENT
  Age: 25 Year
  Sex: Female

DRUGS (4)
  1. ACITRETIN (ACITRETIN) [Suspect]
     Indication: PSORIASIS
     Dates: end: 20040601
  2. DERMOVAL (CLOBETASOL PROPIONATE) [Concomitant]
  3. BETAMETHASONE VALERATE [Concomitant]
  4. TRIDESONIDE (DESONIDE) [Concomitant]

REACTIONS (1)
  - PREGNANCY [None]
